FAERS Safety Report 4666830-6 (Version None)
Quarter: 2005Q2

REPORT INFORMATION
  Report Type: 
  Country: None (occurrence: None)
  Receive Date: 20050519
  Receipt Date: 20050131
  Transmission Date: 20051028
  Serious: Yes (Death)
  Sender: FDA-Public Use
  Company Number: US-MERCK-0502USA00127

PATIENT
  Age: 84 Year
  Sex: Male
  Weight: 86 kg

DRUGS (5)
  1. VIOXX [Suspect]
     Indication: MONARTHRITIS
     Route: 048
     Dates: start: 20000907, end: 20030201
  2. VIOXX [Suspect]
     Indication: PAIN
     Route: 048
     Dates: start: 20000907, end: 20030201
  3. ZOLOFT [Concomitant]
     Indication: DEPRESSION
     Route: 065
  4. PREVACID [Concomitant]
     Indication: GASTROOESOPHAGEAL REFLUX DISEASE
     Route: 065
  5. COUMADIN [Concomitant]
     Route: 065
     Dates: end: 20011019

REACTIONS (9)
  - ALANINE AMINOTRANSFERASE INCREASED [None]
  - ASPARTATE AMINOTRANSFERASE INCREASED [None]
  - ATHEROSCLEROSIS [None]
  - BLOOD LACTATE DEHYDROGENASE INCREASED [None]
  - CARDIAC ARREST [None]
  - FOOT FRACTURE [None]
  - OSTEONECROSIS [None]
  - PERIPHERAL VASCULAR DISORDER [None]
  - UPPER RESPIRATORY TRACT INFECTION [None]
